FAERS Safety Report 9517206 (Version 2)
Quarter: 2013Q3

REPORT INFORMATION
  Report Type: Report from Study
  Country: PR (occurrence: PR)
  Receive Date: 20130911
  Receipt Date: 20130911
  Transmission Date: 20140515
  Serious: Yes (Other)
  Sender: FDA-Public Use
  Company Number: PR-ABBOTT-13P-131-1143362-00

PATIENT
  Age: 54 Year
  Sex: Female
  Weight: 89.89 kg

DRUGS (10)
  1. HUMIRA [Suspect]
     Indication: RHEUMATOID ARTHRITIS
     Route: 058
     Dates: end: 201303
  2. ENBREL [Suspect]
     Indication: RHEUMATOID ARTHRITIS
     Dates: start: 201304
  3. LABETALOL [Concomitant]
     Indication: HYPERTENSION
     Route: 048
     Dates: start: 20130702
  4. METOPROLOL [Concomitant]
     Indication: HYPERTENSION
     Route: 048
     Dates: start: 2009, end: 201308
  5. LYRICA [Concomitant]
     Indication: FIBROMYALGIA
     Dosage: 1 TABLET DAILY AS NEEDED
     Route: 048
     Dates: start: 201212
  6. PERCOCET [Concomitant]
     Indication: FIBROMYALGIA
     Dosage: 325- 975MGS AS NEEDED Q8H
     Route: 048
     Dates: start: 2010
  7. PERCOCET [Concomitant]
     Indication: HEADACHE
  8. METHOTREXATE [Concomitant]
     Indication: RHEUMATOID ARTHRITIS
     Dosage: 5 TABLETS TWICE IN A MONTH
     Route: 048
     Dates: start: 2010
  9. PLAQUENIL [Concomitant]
     Indication: RHEUMATOID ARTHRITIS
     Dosage: 1 TABLET DAILY AS NEEDED
     Route: 048
     Dates: start: 2010
  10. FIORICET [Concomitant]
     Indication: HEADACHE
     Dosage: 325-975MGS DAILY AS NEEDED
     Route: 048
     Dates: start: 2010

REACTIONS (3)
  - Brain neoplasm [Not Recovered/Not Resolved]
  - Nasopharyngitis [Recovering/Resolving]
  - Headache [Not Recovered/Not Resolved]
